FAERS Safety Report 14019299 (Version 1)
Quarter: 2017Q3

REPORT INFORMATION
  Report Type: Spontaneous
  Country: US (occurrence: US)
  Receive Date: 20170928
  Receipt Date: 20170928
  Transmission Date: 20171128
  Serious: No
  Sender: FDA-Public Use
  Company Number: US-BION-006325

PATIENT
  Age: 82 Year
  Sex: Male
  Weight: 80.29 kg

DRUGS (8)
  1. ERGOCALCIFEROL. [Concomitant]
     Active Substance: ERGOCALCIFEROL
     Indication: SUPPLEMENTATION THERAPY
     Dosage: DOSE: 5000 MG/DAILY
  2. WARFARIN [Concomitant]
     Active Substance: WARFARIN
     Indication: HAEMOGLOBIN DECREASED
     Dosage: DOSE: 2 MG/2.5 MG ALTERNATING DAILY FROM YEARS
  3. LASIX [Concomitant]
     Active Substance: FUROSEMIDE
     Indication: OEDEMA
     Dosage: DOSE: 40 MG /2X DAILY FROM YEARS
  4. ALLOPURINOL. [Concomitant]
     Active Substance: ALLOPURINOL
     Indication: NEPHROLITHIASIS
     Dosage: DOSE: 300 MG /DAILY FROM YEARS
  5. METOPROLOL. [Concomitant]
     Active Substance: METOPROLOL
     Indication: HYPERTENSION
     Dosage: DOSE: 50/DAILY FROM YEARS
  6. BABY ASIPRIN [Concomitant]
     Indication: CARDIAC DISORDER
     Dosage: DOSE: 81MG/DAILY FROM YEARS
  7. IRON [Concomitant]
     Active Substance: IRON
     Indication: SUPPLEMENTATION THERAPY
     Dosage: DOSE: 130MG 2X FROM MONTHS
  8. IMODIUM A-D [Suspect]
     Active Substance: LOPERAMIDE HYDROCHLORIDE
     Indication: DIARRHOEA
     Dosage: ABOUT A WEEK??CAPLETS,??THROUGHOUT THE DAY
     Route: 048

REACTIONS (3)
  - Oedema [Not Recovered/Not Resolved]
  - Incorrect dose administered [Not Recovered/Not Resolved]
  - Oedema peripheral [Not Recovered/Not Resolved]
